FAERS Safety Report 18139536 (Version 1)
Quarter: 2020Q3

REPORT INFORMATION
  Report Type: Spontaneous
  Country: US (occurrence: US)
  Receive Date: 20200811
  Receipt Date: 20200811
  Transmission Date: 20201103
  Serious: Yes (Death, Hospitalization)
  Sender: FDA-Public Use
  Company Number: None

PATIENT
  Sex: Female
  Weight: 42.5 kg

DRUGS (1)
  1. TOPOTECAN [Suspect]
     Active Substance: TOPOTECAN HYDROCHLORIDE

REACTIONS (9)
  - Neutropenia [None]
  - Lymphopenia [None]
  - Anaemia [None]
  - Orthopnoea [None]
  - Disease progression [None]
  - Dyspnoea [None]
  - Pneumonia [None]
  - Sepsis [None]
  - Productive cough [None]

NARRATIVE: CASE EVENT DATE: 20200713
